FAERS Safety Report 25499924 (Version 1)
Quarter: 2025Q2

REPORT INFORMATION
  Report Type: Spontaneous
  Country: US (occurrence: None)
  Receive Date: 20250630
  Receipt Date: 20250630
  Transmission Date: 20250716
  Serious: Yes (Hospitalization)
  Sender: FDA-CTU
  Company Number: None

PATIENT
  Age: 39 Year
  Sex: Female
  Weight: 127.35 kg

DRUGS (31)
  1. RECLAST [Suspect]
     Active Substance: ZOLEDRONIC ACID
     Indication: Osteoporosis
     Route: 042
     Dates: start: 20250619, end: 20250619
  2. HYDROCORTISONE [Concomitant]
     Active Substance: HYDROCORTISONE
  3. FLUDROCORTISONE [Concomitant]
     Active Substance: FLUDROCORTISONE
  4. AZATHIOPRINE [Concomitant]
     Active Substance: AZATHIOPRINE
  5. REMICADE [Concomitant]
     Active Substance: INFLIXIMAB
  6. ATENOLOL [Concomitant]
     Active Substance: ATENOLOL
  7. MIDODRINE [Concomitant]
     Active Substance: MIDODRINE
  8. URSODIOL [Concomitant]
     Active Substance: URSODIOL
  9. PEPCID [Concomitant]
     Active Substance: FAMOTIDINE
  10. IRON [Concomitant]
     Active Substance: IRON
  11. PROBIOTICS NOS [Concomitant]
     Active Substance: PROBIOTICS NOS
  12. VIIBRYD [Concomitant]
     Active Substance: VILAZODONE HYDROCHLORIDE
  13. MEMANTINE [Concomitant]
     Active Substance: MEMANTINE
  14. Dextromphentamine [Concomitant]
  15. QUVIVIQ [Concomitant]
     Active Substance: DARIDOREXANT
  16. ZYRTEC [Concomitant]
     Active Substance: CETIRIZINE HYDROCHLORIDE
  17. VITAMIN D3 [Concomitant]
     Active Substance: CHOLECALCIFEROL
  18. Lactated [Concomitant]
  19. AIMOVIG [Concomitant]
     Active Substance: ERENUMAB-AOOE
  20. IV Ketamine [Concomitant]
  21. BENTYL [Concomitant]
     Active Substance: DICYCLOMINE HYDROCHLORIDE
  22. LOMOTIL [Concomitant]
     Active Substance: ATROPINE SULFATE\DIPHENOXYLATE HYDROCHLORIDE
  23. BUDESONIDE [Concomitant]
     Active Substance: BUDESONIDE
  24. DIAZEPAM [Concomitant]
     Active Substance: DIAZEPAM
  25. CYCLOBENZAPRINE [Concomitant]
     Active Substance: CYCLOBENZAPRINE
  26. HYDROMORPHONE [Concomitant]
     Active Substance: HYDROMORPHONE
  27. KETOROLAC [Concomitant]
     Active Substance: KETOROLAC TROMETHAMINE
  28. BENADRYL [Concomitant]
     Active Substance: DIPHENHYDRAMINE HYDROCHLORIDE
  29. COMPAZINE [Concomitant]
     Active Substance: PROCHLORPERAZINE MALEATE
  30. ZOFRAN [Concomitant]
     Active Substance: ONDANSETRON HYDROCHLORIDE
  31. SCOPOLAMINE TRANSDERMAL SYSTEM [Concomitant]
     Active Substance: SCOPOLAMINE

REACTIONS (10)
  - Pyrexia [None]
  - Nausea [None]
  - Dizziness [None]
  - Headache [None]
  - Fatigue [None]
  - Myalgia [None]
  - Bone pain [None]
  - Loss of personal independence in daily activities [None]
  - Emotional disorder [None]
  - Product communication issue [None]

NARRATIVE: CASE EVENT DATE: 20250619
